FAERS Safety Report 4318319-1 (Version None)
Quarter: 2004Q1

REPORT INFORMATION
  Report Type: 
  Country: None (occurrence: None)
  Receive Date: 20040317
  Receipt Date: 20040307
  Transmission Date: 20041129
  Serious: Yes (Death, Hospitalization, Other)
  Sender: FDA-Public Use
  Company Number: WAES 0403USA00719

PATIENT
  Age: 77 Year
  Sex: Female

DRUGS (4)
  1. LIPITOR [Concomitant]
     Dates: end: 20020101
  2. LIPITOR [Concomitant]
     Dates: start: 20020101, end: 20030101
  3. LIPITOR [Concomitant]
     Dates: start: 20030101
  4. ZETIA [Suspect]
     Indication: LOW DENSITY LIPOPROTEIN INCREASED
     Route: 048
     Dates: start: 20030101

REACTIONS (1)
  - HEPATIC FAILURE [None]
